FAERS Safety Report 5283119-5 (Version None)
Quarter: 2007Q2

REPORT INFORMATION
  Report Type: 
  Country: None (occurrence: None)
  Receive Date: 20070402
  Receipt Date: 20070321
  Transmission Date: 20071010
  Serious: Yes (Hospitalization)
  Sender: FDA-Public Use
  Company Number: US-ELI_LILLY_AND_COMPANY-US200703004400

PATIENT
  Age: 64 Year
  Sex: Female

DRUGS (2)
  1. FOSAMAX [Concomitant]
  2. EVISTA [Suspect]
     Indication: OSTEOPOROSIS
     Dates: start: 20000921

REACTIONS (1)
  - TIBIA FRACTURE [None]
